FAERS Safety Report 7002167-8 (Version None)
Quarter: 2010Q3

REPORT INFORMATION
  Report Type: 
  Country: None (occurrence: None)
  Receive Date: 20100920
  Receipt Date: 20090923
  Transmission Date: 20110219
  Serious: Yes (Hospitalization)
  Sender: FDA-Public Use
  Company Number: US-ASTRAZENECA-2009SE14932

PATIENT
  Age: 48 Year
  Sex: Female

DRUGS (14)
  1. SEROQUEL XR [Suspect]
     Indication: BORDERLINE PERSONALITY DISORDER
     Route: 048
     Dates: start: 20080101
  2. SEROQUEL XR [Suspect]
     Route: 048
     Dates: start: 20090101
  3. SEROQUEL XR [Suspect]
     Route: 048
     Dates: start: 20090801
  4. INDERAL [Concomitant]
  5. PRILOSEC [Concomitant]
  6. KLONOPIN [Concomitant]
     Dosage: DAILY DOSAGE 2 MG, TID
  7. REMERON [Concomitant]
  8. RECLAST [Concomitant]
  9. CYMBALTA [Concomitant]
  10. ADVAIR DISKUS 100/50 [Concomitant]
  11. ZANAFLEX [Concomitant]
  12. HYDROCHLOROTHIAZIDE [Concomitant]
     Dates: start: 20090901
  13. FLONASE [Concomitant]
  14. CARDIZEM CD [Concomitant]

REACTIONS (2)
  - DIABETIC HYPEROSMOLAR COMA [None]
  - HYPERGLYCAEMIA [None]
